FAERS Safety Report 11751918 (Version 1)
Quarter: 2015Q4

REPORT INFORMATION
  Report Type: Spontaneous
  Country: BG (occurrence: BG)
  Receive Date: 20151118
  Receipt Date: 20151118
  Transmission Date: 20160304
  Serious: Yes (Other)
  Sender: FDA-Public Use
  Company Number: BG-MYLANLABS-2015M1040153

PATIENT

DRUGS (1)
  1. PACLITAXEL. [Suspect]
     Active Substance: PACLITAXEL
     Indication: PRODUCT USED FOR UNKNOWN INDICATION
     Dosage: 1: 1 MIXTURE OF PACLITAXEL AND SHELLAC WAS USED WITH A PACLITAXEL CONCENTRATION OF 3.0 MICROG/MM 2
     Route: 065

REACTIONS (1)
  - Coronary artery aneurysm [Unknown]
